FAERS Safety Report 4561300-8 (Version None)
Quarter: 2005Q1

REPORT INFORMATION
  Report Type: 
  Country: None (occurrence: None)
  Receive Date: 20050121
  Receipt Date: 20050104
  Transmission Date: 20050727
  Serious: No
  Sender: FDA-Public Use
  Company Number: A02200500009

PATIENT
  Age: 56 Year
  Sex: Male

DRUGS (3)
  1. ELOXATINE - (OXALIPLATIN) - POWDER - 5 MG/ML [Suspect]
     Indication: COLON CANCER METASTATIC
     Dosage: INTRAVENOUS NOS
     Route: 042
     Dates: start: 20040301, end: 20040301
  2. FLUOROURACIL [Concomitant]
  3. FOLINIC ACID [Concomitant]

REACTIONS (1)
  - DERMATOMYOSITIS [None]
